FAERS Safety Report 16791695 (Version 1)
Quarter: 2019Q3

REPORT INFORMATION
  Report Type: Spontaneous
  Country: US (occurrence: US)
  Receive Date: 20190910
  Receipt Date: 20190910
  Transmission Date: 20191005
  Serious: No
  Sender: FDA-Public Use
  Company Number: US-ELI_LILLY_AND_COMPANY-US201909002771

PATIENT
  Sex: Female

DRUGS (2)
  1. FORTEO [Suspect]
     Active Substance: TERIPARATIDE
     Indication: BONE DISORDER
     Dosage: UNK, UNKNOWN
     Route: 065
     Dates: start: 20190814
  2. ATENOLOL A L [Concomitant]
     Indication: HYPERTENSION

REACTIONS (14)
  - Skin hypertrophy [Unknown]
  - Asthenopia [Unknown]
  - Fatigue [Unknown]
  - Asthenia [Unknown]
  - Balance disorder [Unknown]
  - Pruritus [Unknown]
  - Urinary tract infection [Unknown]
  - Pain in extremity [Unknown]
  - Headache [Unknown]
  - Sleep disorder due to general medical condition, insomnia type [Unknown]
  - Pain in jaw [Unknown]
  - Blister [Unknown]
  - Ankylosing spondylitis [Unknown]
  - Back pain [Unknown]

NARRATIVE: CASE EVENT DATE: 20190814
